FAERS Safety Report 23554858 (Version 1)
Quarter: 2024Q1

REPORT INFORMATION
  Report Type: Spontaneous
  Country: US (occurrence: None)
  Receive Date: 20240222
  Receipt Date: 20240222
  Transmission Date: 20240410
  Serious: No
  Sender: FDA-Public Use
  Company Number: None

PATIENT
  Age: 74 Year
  Sex: Female
  Weight: 58.06 kg

DRUGS (6)
  1. RINVOQ [Suspect]
     Active Substance: UPADACITINIB
     Indication: Rheumatoid arthritis
     Dosage: FREQUENCY : DAILY;?
     Route: 048
     Dates: start: 202309
  2. RINVOQ [Suspect]
     Active Substance: UPADACITINIB
     Indication: Rheumatoid factor positive
  3. RINVOQ [Suspect]
     Active Substance: UPADACITINIB
     Indication: Polyarthritis
  4. RINVOQ [Suspect]
     Active Substance: UPADACITINIB
     Indication: Rheumatoid nodule
  5. RINVOQ [Suspect]
     Active Substance: UPADACITINIB
     Indication: Osteoarthritis
  6. RINVOQ [Suspect]
     Active Substance: UPADACITINIB
     Indication: Fibromyalgia

REACTIONS (2)
  - Urinary tract infection [None]
  - Therapy interrupted [None]
